FAERS Safety Report 6590063-X (Version None)
Quarter: 2010Q1

REPORT INFORMATION
  Report Type: 
  Country: None (occurrence: None)
  Receive Date: 20100219
  Receipt Date: 20100215
  Transmission Date: 20100710
  Serious: Yes (Death)
  Sender: FDA-Public Use
  Company Number: PHHY2010DE09119

PATIENT
  Age: 17 Year
  Sex: Male

DRUGS (3)
  1. CARBAMAZEPINE [Suspect]
     Indication: MYOCLONIC EPILEPSY
  2. BARBITURATES [Suspect]
  3. TOPIRAMATE [Suspect]

REACTIONS (2)
  - INFECTION [None]
  - STATUS EPILEPTICUS [None]
